FAERS Safety Report 18074491 (Version 2)
Quarter: 2020Q3

REPORT INFORMATION
  Report Type: Spontaneous
  Country: US (occurrence: US)
  Receive Date: 20200727
  Receipt Date: 20200825
  Transmission Date: 20201103
  Serious: Yes (Life-Threatening, Other)
  Sender: FDA-Public Use
  Company Number: US-BRISTOL-MYERS SQUIBB COMPANY-BMS-2020-056939

PATIENT
  Age: 57 Year
  Sex: Male
  Weight: 96.16 kg

DRUGS (3)
  1. IBUPROFEN. [Concomitant]
     Active Substance: IBUPROFEN
     Indication: PRODUCT USED FOR UNKNOWN INDICATION
     Route: 065
  2. KENALOG?40 [Suspect]
     Active Substance: TRIAMCINOLONE ACETONIDE
     Indication: PAIN
  3. KENALOG?40 [Suspect]
     Active Substance: TRIAMCINOLONE ACETONIDE
     Indication: BACK DISORDER
     Dosage: UNAVAILABLE (SEE NARRATIVE)
     Route: 008
     Dates: start: 201911

REACTIONS (5)
  - Intentional product use issue [Unknown]
  - Swollen tongue [Unknown]
  - Urticaria [Unknown]
  - Anaphylactic reaction [Unknown]
  - Expired product administered [Unknown]

NARRATIVE: CASE EVENT DATE: 201911
